FAERS Safety Report 24927085 (Version 1)
Quarter: 2025Q1

REPORT INFORMATION
  Report Type: Report from Study
  Country: US (occurrence: US)
  Receive Date: 20250205
  Receipt Date: 20250205
  Transmission Date: 20250409
  Serious: No
  Sender: ACADIA PHARMACEUTICALS
  Company Number: US-ACADIA PHARMACEUTICALS INC.-ACA-2025-PIM-000792

PATIENT
  Age: 75 Year
  Sex: Male

DRUGS (12)
  1. NUPLAZID [Suspect]
     Active Substance: PIMAVANSERIN TARTRATE
     Indication: Parkinson^s disease
     Dosage: 34 MILLIGRAM, QD
     Route: 048
     Dates: start: 20241218
  2. MAGNESIUM [Concomitant]
     Active Substance: MAGNESIUM
  3. PREGABALIN [Concomitant]
     Active Substance: PREGABALIN
  4. FLECAINIDE [Concomitant]
     Active Substance: FLECAINIDE
  5. ELIQUIS [Concomitant]
     Active Substance: APIXABAN
  6. CARBIDOPA\LEVODOPA [Concomitant]
     Active Substance: CARBIDOPA\LEVODOPA
  7. VITAMIN B12 [Concomitant]
     Active Substance: CYANOCOBALAMIN
  8. VITAMIN B6 [Concomitant]
     Active Substance: PYRIDOXINE HYDROCHLORIDE
  9. SENNA LEAF [Concomitant]
     Active Substance: SENNA LEAF
  10. MIRTAZAPINE [Concomitant]
     Active Substance: MIRTAZAPINE
  11. TYLENOL [Concomitant]
     Active Substance: ACETAMINOPHEN
  12. PRAMIPEXOLE [Concomitant]
     Active Substance: PRAMIPEXOLE

REACTIONS (3)
  - Chest pain [Not Recovered/Not Resolved]
  - Gastrointestinal pain [Not Recovered/Not Resolved]
  - Nausea [Not Recovered/Not Resolved]

NARRATIVE: CASE EVENT DATE: 20241218
